FAERS Safety Report 10344741 (Version 2)
Quarter: 2014Q3

REPORT INFORMATION
  Report Type: Spontaneous
  Country: AT (occurrence: None)
  Receive Date: 20140724
  Receipt Date: 20140812
  Transmission Date: 20150326
  Serious: Yes (Other)
  Sender: FDA-Public Use
  Company Number: AUR-APL-2014-07837

PATIENT
  Age: 81 Year
  Sex: Female

DRUGS (6)
  1. NEBIVOLOL (NEBIVOLOL) [Concomitant]
  2. DILTIAZEM [Suspect]
     Active Substance: DILTIAZEM
     Indication: PRODUCT USED FOR UNKNOWN INDICATION
  3. SIMVASTATIN. [Suspect]
     Active Substance: SIMVASTATIN
     Indication: PRODUCT USED FOR UNKNOWN INDICATION
  4. RIVAROXABAN [Suspect]
     Active Substance: RIVAROXABAN
     Indication: PRODUCT USED FOR UNKNOWN INDICATION
  5. PIPERACILLIN SODIUM W/TAZOBACTAM(PIPERACILLIN SODIUM, TAZOBACTAM) [Concomitant]
  6. TRAZODONE [Concomitant]
     Active Substance: TRAZODONE HYDROCHLORIDE

REACTIONS (5)
  - Anaemia [None]
  - Drug interaction [None]
  - Haematoma [None]
  - Neck pain [None]
  - Catheter site haemorrhage [None]
